FAERS Safety Report 19926176 (Version 1)
Quarter: 2021Q4

REPORT INFORMATION
  Report Type: Spontaneous
  Country: CA (occurrence: CA)
  Receive Date: 20211006
  Receipt Date: 20211006
  Transmission Date: 20220303
  Serious: Yes (Life-Threatening, Hospitalization)
  Sender: FDA-Public Use
  Company Number: CA-TEVA-2021-CA-1960973

PATIENT
  Age: 35 Year
  Sex: Female
  Weight: 99 kg

DRUGS (15)
  1. LEUCOVORIN CALCIUM [Suspect]
     Active Substance: LEUCOVORIN CALCIUM
     Route: 042
  2. OXALIPLATIN [Suspect]
     Active Substance: OXALIPLATIN
     Route: 042
  3. FLUOROURACIL [Suspect]
     Active Substance: FLUOROURACIL
     Indication: Rectal cancer
     Route: 042
  4. FLUOROURACIL [Suspect]
     Active Substance: FLUOROURACIL
     Indication: Metastases to ovary
     Route: 042
  5. FLUOROURACIL [Suspect]
     Active Substance: FLUOROURACIL
     Indication: Metastases to lung
  6. FLUOROURACIL [Suspect]
     Active Substance: FLUOROURACIL
     Indication: Metastases to liver
  7. FLUOROURACIL [Suspect]
     Active Substance: FLUOROURACIL
     Indication: Malignant ascites
  8. DIMENHYDRINATE [Concomitant]
     Active Substance: DIMENHYDRINATE
  9. FILGRASTIM [Concomitant]
     Active Substance: FILGRASTIM
  10. LOPERAMIDE [Concomitant]
     Active Substance: LOPERAMIDE
  11. METOCLOPRAMIDE [Concomitant]
     Active Substance: METOCLOPRAMIDE
  12. NYSTATIN [Concomitant]
     Active Substance: NYSTATIN
  13. ONDANSETRON [Concomitant]
     Active Substance: ONDANSETRON
  14. POTASSIUM CHLORIDE [Concomitant]
     Active Substance: POTASSIUM CHLORIDE
  15. ZOPICLONE [Concomitant]
     Active Substance: ZOPICLONE

REACTIONS (1)
  - Escherichia sepsis [Recovered/Resolved]
